FAERS Safety Report 13251599 (Version 1)
Quarter: 2017Q1

REPORT INFORMATION
  Report Type: Spontaneous
  Country: US (occurrence: US)
  Receive Date: 20170220
  Receipt Date: 20170220
  Transmission Date: 20170428
  Serious: No
  Sender: FDA-Public Use
  Company Number: US-BIOGEN-2017BI00357854

PATIENT
  Sex: Female

DRUGS (1)
  1. TECFIDERA [Suspect]
     Active Substance: DIMETHYL FUMARATE
     Indication: MULTIPLE SCLEROSIS
     Route: 065
     Dates: start: 20170119, end: 20170210

REACTIONS (5)
  - Eye disorder [Unknown]
  - Cough [Unknown]
  - Nausea [Unknown]
  - Pruritus [Unknown]
  - Chest discomfort [Unknown]
